APPROVED DRUG PRODUCT: CEFAZOLIN SODIUM
Active Ingredient: CEFAZOLIN SODIUM
Strength: EQ 1GM BASE/VIAL
Dosage Form/Route: INJECTABLE;INJECTION
Application: A203661 | Product #001 | TE Code: AP
Applicant: QILU ANTIBIOTICS PHARMACEUTICAL CO LTD
Approved: Dec 28, 2015 | RLD: No | RS: No | Type: RX